FAERS Safety Report 9414533 (Version 5)
Quarter: 2018Q3

REPORT INFORMATION
  Report Type: Report from Study
  Country: DE (occurrence: DE)
  Receive Date: 20130723
  Receipt Date: 20180702
  Transmission Date: 20181010
  Serious: Yes (Hospitalization, Other)
  Sender: FDA-Public Use
  Company Number: DE-CELGENEUS-062-21880-13062009

PATIENT
  Age: 61 Year
  Sex: Male
  Weight: 112 kg

DRUGS (13)
  1. PAMIDRONATE [Concomitant]
     Active Substance: PAMIDRONATE DISODIUM
     Indication: PRODUCT USED FOR UNKNOWN INDICATION
     Route: 065
  2. DEXAMETHASONE ORAL [Suspect]
     Active Substance: DEXAMETHASONE
     Dosage: 40 MILLIGRAM
     Route: 048
     Dates: end: 20130611
  3. XARELTO [Concomitant]
     Active Substance: RIVAROXABAN
     Indication: ANTICOAGULANT THERAPY
     Dosage: 1?0?1
     Route: 065
  4. CEFUROXIME. [Concomitant]
     Active Substance: CEFUROXIME
     Indication: INFECTION PROPHYLAXIS
     Route: 065
  5. REVLIMID [Suspect]
     Active Substance: LENALIDOMIDE
     Dosage: 25 MILLIGRAM
     Route: 048
     Dates: start: 20130625
  6. PIMAFUCIN [Concomitant]
     Indication: PRODUCT USED FOR UNKNOWN INDICATION
     Dosage: 3?4
     Route: 065
  7. REVLIMID [Suspect]
     Active Substance: LENALIDOMIDE
     Dosage: 25 MILLIGRAM
     Route: 048
     Dates: end: 20130610
  8. DEXAMETHASONE ORAL [Suspect]
     Active Substance: DEXAMETHASONE
     Dosage: 40 MILLIGRAM
     Route: 048
     Dates: start: 20130618
  9. COTRIM FORTE [Concomitant]
     Active Substance: SULFAMETHOXAZOLE\TRIMETHOPRIM
     Indication: PRODUCT USED FOR UNKNOWN INDICATION
     Dosage: 2 DAYS PER WEEK
     Route: 065
  10. DEXAMETHASONE ORAL [Suspect]
     Active Substance: DEXAMETHASONE
     Indication: PLASMA CELL MYELOMA
     Dosage: 40 MILLIGRAM
     Route: 048
     Dates: start: 20120925, end: 20130423
  11. REVLIMID [Suspect]
     Active Substance: LENALIDOMIDE
     Indication: PLASMA CELL MYELOMA
     Dosage: 25 MILLIGRAM
     Route: 048
     Dates: start: 20120925, end: 20130425
  12. PANTOPRAZOLE [Concomitant]
     Active Substance: PANTOPRAZOLE
     Indication: PRODUCT USED FOR UNKNOWN INDICATION
     Dosage: 40 MILLIGRAM
     Route: 065
  13. CALCIUM AND VIT D [Concomitant]
     Active Substance: CALCIUM\VITAMIN D
     Indication: PRODUCT USED FOR UNKNOWN INDICATION
     Route: 065

REACTIONS (2)
  - Impaired healing [Recovered/Resolved]
  - Ankle fracture [Recovered/Resolved]

NARRATIVE: CASE EVENT DATE: 20130426
